FAERS Safety Report 8108586-0 (Version None)
Quarter: 2012Q1

REPORT INFORMATION
  Report Type: 
  Country: None (occurrence: None)
  Receive Date: 20120202
  Receipt Date: 20120201
  Transmission Date: 20120608
  Serious: Yes (Other)
  Sender: FDA-Public Use
  Company Number: PHFR2011IE03973

PATIENT
  Sex: Male

DRUGS (3)
  1. VALPROATE SODIUM [Concomitant]
     Indication: EPILEPSY
     Dosage: 1200 MG/DAY
     Route: 048
  2. AMISULPRIDE [Suspect]
     Indication: PSYCHOTIC DISORDER
     Dosage: 800 MG/DAY
     Route: 048
  3. CLOZARIL [Suspect]
     Indication: PSYCHOTIC DISORDER
     Dosage: 150 MG/DAY
     Route: 048
     Dates: start: 20050809, end: 20110619

REACTIONS (6)
  - NEUTROPHIL COUNT DECREASED [None]
  - NEUTROPENIA [None]
  - WHITE BLOOD CELL COUNT DECREASED [None]
  - INFLUENZA LIKE ILLNESS [None]
  - PYREXIA [None]
  - LEUKOPENIA [None]
